FAERS Safety Report 14321590 (Version 2)
Quarter: 2021Q4

REPORT INFORMATION
  Report Type: Report from Study
  Country: FR (occurrence: FR)
  Receive Date: 20171224
  Receipt Date: 20211025
  Transmission Date: 20220303
  Serious: Yes (Hospitalization, Other)
  Sender: FDA-Public Use
  Company Number: FR-SHIRE-FR201715506

PATIENT
  Age: 6 Year
  Sex: Male

DRUGS (19)
  1. METHOTREXATE [Suspect]
     Active Substance: METHOTREXATE
     Indication: Acute lymphocytic leukaemia
     Dosage: 22 MILLIGRAM (22 MG, UNK)
     Route: 037
     Dates: start: 20161228, end: 20161228
  2. METHOTREXATE [Suspect]
     Active Substance: METHOTREXATE
     Dosage: 12 MILLIGRAM (12 MG, UNK)
     Route: 037
     Dates: start: 20170128
  3. HYDROCORTISONE [Suspect]
     Active Substance: HYDROCORTISONE
     Dosage: 15 MILLIGRAM (15 MG, UNK)
     Route: 037
  4. HYDROCORTISONE [Suspect]
     Active Substance: HYDROCORTISONE
     Dosage: 15 MILLIGRAM (15 MG, UNK)
     Route: 037
     Dates: start: 20161228, end: 20161228
  5. CYTARABINE [Suspect]
     Active Substance: CYTARABINE
     Indication: Acute lymphocytic leukaemia
     Dosage: 30 MILLIGRAM (30 MG, UNK)
     Route: 065
     Dates: start: 20170128
  6. CYTARABINE [Suspect]
     Active Substance: CYTARABINE
     Dosage: 30 MILLIGRAM (30 MG, UNK)
     Route: 037
     Dates: start: 20161228, end: 20161228
  7. CYTARABINE [Suspect]
     Active Substance: CYTARABINE
     Dosage: 53 MILLIGRAM (53 MG, UNK)
     Route: 042
     Dates: start: 20170128
  8. CYTARABINE [Suspect]
     Active Substance: CYTARABINE
     Dosage: 54 MILLIGRAM (54 MG, UNK)
     Route: 042
     Dates: start: 20170104, end: 20170107
  9. CYTARABINE [Suspect]
     Active Substance: CYTARABINE
     Dosage: 54 MILLIGRAM (54 MG, UNK)
     Route: 042
     Dates: start: 20161228, end: 20161231
  10. VINCRISTINE [Suspect]
     Active Substance: VINCRISTINE
     Indication: Acute lymphocytic leukaemia
     Dosage: 1.1 MILLIGRAM (1.1 MG, UNK)
     Route: 042
     Dates: start: 20170109, end: 20170116
  11. PEGASPARGASE [Suspect]
     Active Substance: PEGASPARGASE
     Indication: Acute lymphocytic leukaemia
     Dosage: 1800 INTERNATIONAL UNIT (1800 IU, UNK)
     Route: 042
     Dates: start: 20170109, end: 20170109
  12. MERCAPTOPURINE [Suspect]
     Active Substance: MERCAPTOPURINE
     Indication: Acute lymphocytic leukaemia
     Dosage: 42 MILLIGRAM (42 MG, UNK)
     Route: 048
     Dates: start: 20161226, end: 20170106
  13. CYCLOPHOSPHAMIDE [Suspect]
     Active Substance: CYCLOPHOSPHAMIDE
     Indication: Acute lymphocytic leukaemia
     Dosage: 730 MILLIGRAM (730 MG, UNK)
     Route: 042
     Dates: start: 20161226, end: 20161226
  14. VIALEBEX [Concomitant]
     Active Substance: ALBUMIN HUMAN
     Indication: Hypoalbuminaemia
     Dosage: UNK
  15. ERGOCALCIFEROL [Concomitant]
     Active Substance: ERGOCALCIFEROL
     Indication: Prophylaxis
     Dosage: UNK
  16. CALCIUM CARBONATE [Concomitant]
     Active Substance: CALCIUM CARBONATE
     Indication: Prophylaxis
     Dosage: UNK
  17. ESOMEPRAZOLE. [Concomitant]
     Active Substance: ESOMEPRAZOLE MAGNESIUM
     Indication: Prophylaxis
     Dosage: UNK
  18. LACTULOSE [Concomitant]
     Active Substance: LACTULOSE
     Indication: Prophylaxis
     Dosage: UNK
  19. ACETAMINOPHEN [Concomitant]
     Active Substance: ACETAMINOPHEN
     Indication: Ear infection
     Dosage: UNK

REACTIONS (2)
  - Febrile bone marrow aplasia [Recovered/Resolved]
  - Otitis media acute [Recovered/Resolved]

NARRATIVE: CASE EVENT DATE: 20170123
